FAERS Safety Report 11671155 (Version 1)
Quarter: 2015Q4

REPORT INFORMATION
  Report Type: Spontaneous
  Country: US (occurrence: US)
  Receive Date: 20151027
  Receipt Date: 20151027
  Transmission Date: 20160304
  Serious: No
  Sender: FDA-Public Use
  Company Number: US-ELI_LILLY_AND_COMPANY-US201005006967

PATIENT
  Sex: Female

DRUGS (8)
  1. DOXYCYCLIN /00055701/ [Concomitant]
  2. NORVASC [Concomitant]
     Active Substance: AMLODIPINE BESYLATE
  3. TRANZINE [Concomitant]
     Active Substance: CHLORPROMAZINE HYDROCHLORIDE
  4. ATENOLOL. [Concomitant]
     Active Substance: ATENOLOL
  5. METILPREDNISOLONA                  /00049602/ [Concomitant]
  6. FAMCICLOVIR. [Concomitant]
     Active Substance: FAMCICLOVIR
  7. FORTEO [Suspect]
     Active Substance: TERIPARATIDE
     Indication: OSTEOPOROSIS
     Dosage: 20 UG, DAILY (1/D)
     Route: 065
     Dates: start: 200807
  8. ALLEGRA [Concomitant]
     Active Substance: FEXOFENADINE HYDROCHLORIDE

REACTIONS (2)
  - Erythema [Unknown]
  - Herpes zoster [Unknown]
